FAERS Safety Report 5755514-9 (Version None)
Quarter: 2008Q2

REPORT INFORMATION
  Report Type: 
  Country: None (occurrence: None)
  Receive Date: 20080602
  Receipt Date: 20080522
  Transmission Date: 20081010
  Serious: Yes (Hospitalization)
  Sender: FDA-Public Use
  Company Number: US-JNJFOC-20080505374

PATIENT
  Age: 50 Year
  Sex: Female

DRUGS (4)
  1. FENTANYL TRANSDERMAL SYSTEM [Suspect]
     Indication: PAIN
     Route: 062
  2. DURAGESIC-100 [Suspect]
     Dosage: 2 X 12.5 UG/HR PATCHES
     Route: 062
  3. DURAGESIC-100 [Suspect]
     Indication: PAIN
     Route: 062
  4. LYRICA [Suspect]
     Indication: PAIN
     Route: 048

REACTIONS (3)
  - JOINT INJECTION [None]
  - PAIN [None]
  - PALPITATIONS [None]
